FAERS Safety Report 9743503 (Version 1)
Quarter: 2013Q4

REPORT INFORMATION
  Report Type: Spontaneous
  Country: JP (occurrence: JP)
  Receive Date: 20131210
  Receipt Date: 20131210
  Transmission Date: 20140711
  Serious: Yes (Other)
  Sender: FDA-Public Use
  Company Number: JP-EISAI INC-E2090-03010-SPO-JP

PATIENT
  Age: 38 Month
  Sex: 0

DRUGS (1)
  1. EXCEGRAN [Suspect]
     Indication: CONVULSION PROPHYLAXIS
     Dosage: UNKNOWN
     Route: 048

REACTIONS (2)
  - Motor developmental delay [Unknown]
  - Speech disorder developmental [Unknown]
